FAERS Safety Report 21991621 (Version 1)
Quarter: 2023Q1

REPORT INFORMATION
  Report Type: Spontaneous
  Country: FR (occurrence: FR)
  Receive Date: 20230214
  Receipt Date: 20230214
  Transmission Date: 20230417
  Serious: Yes (Other)
  Sender: FDA-Public Use
  Company Number: FR-WOODWARD-2023-FR-000026

PATIENT
  Age: 71 Year
  Sex: Female
  Weight: 74 kg

DRUGS (4)
  1. RABEPRAZOLE SODIUM [Suspect]
     Active Substance: RABEPRAZOLE SODIUM
     Indication: Product used for unknown indication
     Dosage: (20 MG,1 D)
     Route: 048
     Dates: start: 2017
  2. SIMVASTATIN [Suspect]
     Active Substance: SIMVASTATIN
     Dosage: (20 MG,1 D)
     Route: 048
     Dates: start: 202102, end: 20221109
  3. BENSERAZIDE HYDROCHLORIDE\LEVODOPA [Suspect]
     Active Substance: BENSERAZIDE HYDROCHLORIDE\LEVODOPA
     Dosage: (375 MG,1 D)
     Route: 048
     Dates: start: 202202
  4. FLUOXETINE HYDROCHLORIDE [Concomitant]
     Active Substance: FLUOXETINE HYDROCHLORIDE
     Dosage: (20 MG,1 D)
     Route: 048

REACTIONS (1)
  - Colitis microscopic [Recovered/Resolved]

NARRATIVE: CASE EVENT DATE: 20220901
